FAERS Safety Report 6243164-X (Version None)
Quarter: 2009Q2

REPORT INFORMATION
  Report Type: 
  Country: None (occurrence: None)
  Receive Date: 20090622
  Receipt Date: 20090615
  Transmission Date: 20091009
  Serious: Yes (Life-Threatening, Hospitalization)
  Sender: FDA-Public Use
  Company Number: ADR4972009 (MHRAADRNO:.20440568-001

PATIENT
  Age: 77 Year
  Sex: Male

DRUGS (11)
  1. SIMVASTATIN [Suspect]
     Indication: CEREBROVASCULAR ACCIDENT
     Dosage: 40 MG, ORAL
     Route: 048
     Dates: start: 20081001, end: 20090513
  2. SIMVASTATIN [Suspect]
     Indication: MYOCARDIAL ISCHAEMIA
     Dosage: 40 MG, ORAL
     Route: 048
     Dates: start: 20081001, end: 20090513
  3. AMIODARONE HCL [Concomitant]
  4. AMLODIPINE [Concomitant]
  5. ASPIRIN [Concomitant]
  6. AMOXICILLIN AND CLAVULANATE POTASSIUM [Concomitant]
  7. GLYCERYL TRINTRATE [Concomitant]
  8. GOSERELIN [Concomitant]
  9. RAMIPRIL [Concomitant]
  10. LEVOTHYROXINE SODIUM [Concomitant]
  11. TIMOLOL MALEATE [Concomitant]

REACTIONS (3)
  - BLOOD CREATINE PHOSPHOKINASE INCREASED [None]
  - MUSCLE NECROSIS [None]
  - MYOPATHY [None]
